FAERS Safety Report 12188563 (Version 3)
Quarter: 2016Q2

REPORT INFORMATION
  Report Type: Report from Study
  Country: US (occurrence: US)
  Receive Date: 20160317
  Receipt Date: 20160405
  Transmission Date: 20160815
  Serious: Yes (Hospitalization, Other)
  Sender: FDA-Public Use
  Company Number: US-ABBVIE-16K-163-1574145-00

PATIENT
  Sex: Male

DRUGS (1)
  1. HUMIRA [Suspect]
     Active Substance: ADALIMUMAB
     Indication: PSORIATIC ARTHROPATHY
     Route: 058
     Dates: start: 201511

REACTIONS (6)
  - Joint swelling [Unknown]
  - Arterial occlusive disease [Unknown]
  - Back pain [Not Recovered/Not Resolved]
  - Joint stiffness [Unknown]
  - Painful respiration [Unknown]
  - Arthralgia [Unknown]
